FAERS Safety Report 8268899-9 (Version None)
Quarter: 2012Q2

REPORT INFORMATION
  Report Type: 
  Country: None (occurrence: None)
  Receive Date: 20120409
  Receipt Date: 20120405
  Transmission Date: 20120825
  Serious: Yes (Life-Threatening, Hospitalization)
  Sender: FDA-Public Use
  Company Number: FR-ABBOTT-12P-056-0922604-00

PATIENT
  Age: 52 Year
  Sex: Male

DRUGS (5)
  1. PIPAMPERONE [Suspect]
     Indication: PRODUCT USED FOR UNKNOWN INDICATION
     Route: 048
  2. ASPIRIN [Suspect]
     Indication: CEREBROVASCULAR ACCIDENT
     Route: 048
  3. BACLOFEN [Suspect]
     Indication: CEREBROVASCULAR ACCIDENT
  4. DEPAKOTE [Suspect]
     Indication: EPILEPSY
     Route: 048
     Dates: end: 20120228
  5. DIPHIVAN [Suspect]
     Indication: ANAESTHESIA
     Route: 065
     Dates: start: 20120227, end: 20120227

REACTIONS (3)
  - CIRCULATORY COLLAPSE [None]
  - PANCREATITIS ACUTE [None]
  - RESPIRATORY DISTRESS [None]
